FAERS Safety Report 12100458 (Version 2)
Quarter: 2016Q1

REPORT INFORMATION
  Report Type: Spontaneous
  Country: US (occurrence: US)
  Receive Date: 20160222
  Receipt Date: 20160322
  Transmission Date: 20160526
  Serious: No
  Sender: FDA-Public Use
  Company Number: US-JNJFOC-20160119780

PATIENT
  Age: 35 Year
  Sex: Male
  Weight: 124.74 kg

DRUGS (3)
  1. STELARA [Suspect]
     Active Substance: USTEKINUMAB
     Indication: PSORIASIS
     Route: 058
     Dates: start: 2014
  2. OTEZLA [Concomitant]
     Active Substance: APREMILAST
     Indication: PSORIASIS
     Route: 048
     Dates: start: 201511
  3. SINGULAIR [Concomitant]
     Active Substance: MONTELUKAST SODIUM
     Indication: MULTIPLE ALLERGIES
     Route: 048

REACTIONS (4)
  - Psoriasis [Not Recovered/Not Resolved]
  - Pruritus generalised [Not Recovered/Not Resolved]
  - Drug dose omission [Unknown]
  - Device malfunction [Unknown]

NARRATIVE: CASE EVENT DATE: 2014
